FAERS Safety Report 6067142-9 (Version None)
Quarter: 2009Q1

REPORT INFORMATION
  Report Type: 
  Country: None (occurrence: None)
  Receive Date: 20090204
  Receipt Date: 20090204
  Transmission Date: 20090719
  Serious: Yes (Other)
  Sender: FDA-Public Use
  Company Number: None

PATIENT
  Age: 52 Year
  Sex: Female
  Weight: 61.2356 kg

DRUGS (1)
  1. TEGRETOL [Suspect]
     Indication: TRIGEMINAL NEURALGIA
     Dosage: INCREASING DOSES- PILLS TWICE A DAY PO
     Route: 048
     Dates: start: 20090101, end: 20090101

REACTIONS (1)
  - STEVENS-JOHNSON SYNDROME [None]
